FAERS Safety Report 9938490 (Version 2)
Quarter: 2014Q1

REPORT INFORMATION
  Report Type: Report from Study
  Country: US (occurrence: US)
  Receive Date: 20140303
  Receipt Date: 20140303
  Transmission Date: 20141002
  Serious: No
  Sender: FDA-Public Use
  Company Number: US-ABBVIE-11P-163-0859999-00

PATIENT
  Age: 39 Year
  Sex: Female

DRUGS (14)
  1. HUMIRA 40 MG/0.8 ML PEN [Suspect]
     Indication: ANKYLOSING SPONDYLITIS
     Dates: start: 201005, end: 201106
  2. HUMIRA 40 MG/0.8 ML PEN [Suspect]
     Indication: RHEUMATOID ARTHRITIS
  3. HUMIRA [Suspect]
     Indication: RHEUMATOID ARTHRITIS
  4. AMBIEN [Concomitant]
     Indication: INSOMNIA
  5. METHOTREXATE [Concomitant]
     Indication: PRODUCT USED FOR UNKNOWN INDICATION
  6. PREDNISONE [Concomitant]
     Indication: CONDITION AGGRAVATED
     Dosage: TAPER
  7. PREDNISONE [Concomitant]
     Dosage: TAPER
  8. PREDNISONE [Concomitant]
     Dosage: TAPER
  9. PREDNISONE [Concomitant]
     Dosage: TAPER
  10. OXYCONTIN [Concomitant]
     Indication: PAIN
  11. B12 [Concomitant]
     Indication: PRODUCT USED FOR UNKNOWN INDICATION
     Dosage: WEEKLY
     Route: 050
  12. VENLAFAXINE [Concomitant]
     Indication: ANXIETY
     Dosage: DAILY
  13. TRIAMTERENE/HCTZ [Concomitant]
     Indication: BLOOD PRESSURE
  14. NIFEDICAL XL [Concomitant]
     Indication: BLOOD PRESSURE
     Dosage: DAILY

REACTIONS (3)
  - Contusion [Unknown]
  - Contusion [Recovered/Resolved]
  - Condition aggravated [Unknown]
